FAERS Safety Report 7103092-4 (Version None)
Quarter: 2010Q4

REPORT INFORMATION
  Report Type: 
  Country: None (occurrence: None)
  Receive Date: 20101115
  Receipt Date: 20100520
  Transmission Date: 20110411
  Serious: Yes (Hospitalization, Other)
  Sender: FDA-Public Use
  Company Number: US-BAYER-200932946NA

PATIENT
  Age: 23 Year
  Sex: Female
  Weight: 57 kg

DRUGS (3)
  1. YASMIN [Suspect]
     Indication: PRODUCT USED FOR UNKNOWN INDICATION
     Dates: start: 20070201, end: 20070831
  2. YASMIN [Suspect]
     Dates: start: 20040301, end: 20040301
  3. MOTRIN [Concomitant]

REACTIONS (11)
  - ANXIETY [None]
  - BURNING SENSATION [None]
  - CHEST PAIN [None]
  - DYSPNOEA [None]
  - FEELING HOT [None]
  - INJURY [None]
  - MIGRAINE [None]
  - PANIC ATTACK [None]
  - PULMONARY EMBOLISM [None]
  - SINUSITIS [None]
  - VISION BLURRED [None]
